FAERS Safety Report 5351591-8 (Version None)
Quarter: 2007Q2

REPORT INFORMATION
  Report Type: 
  Country: None (occurrence: None)
  Receive Date: 20070521
  Receipt Date: 20070410
  Transmission Date: 20071010
  Serious: No
  Sender: FDA-Public Use
  Company Number: WAES 0704USA01607

PATIENT
  Age: 68 Year
  Sex: Male

DRUGS (8)
  1. JANUVIA [Suspect]
     Indication: DIABETES MELLITUS
     Dosage: 100 MG/DAILY/PO
     Route: 048
     Dates: start: 20061207
  2. DIOVAN [Concomitant]
  3. HUMALOG [Concomitant]
  4. LEVEMIR [Concomitant]
  5. OMNICEF [Concomitant]
  6. BENAZEPRIL HYDROCHLORIDE [Concomitant]
  7. METFORMIN HCL [Concomitant]
  8. SIMVASTATIN [Concomitant]

REACTIONS (5)
  - BLOOD GLUCOSE INCREASED [None]
  - EAR INFECTION [None]
  - EYE INFECTION [None]
  - NASAL CONGESTION [None]
  - SINUSITIS [None]
